FAERS Safety Report 5822803-9 (Version None)
Quarter: 2008Q3

REPORT INFORMATION
  Report Type: 
  Country: None (occurrence: None)
  Receive Date: 20080725
  Receipt Date: 20080715
  Transmission Date: 20090109
  Serious: Yes (Disabling, Other)
  Sender: FDA-Public Use
  Company Number: JP-JNJFOC-20080503591

PATIENT
  Age: 26 Year
  Sex: Male
  Weight: 46 kg

DRUGS (5)
  1. REMICADE [Suspect]
     Indication: CROHN'S DISEASE
     Dosage: TOTAL OF 7 INFUSIONS.
     Route: 042
  2. AZATHIOPRINE [Suspect]
     Indication: DRUG USE FOR UNKNOWN INDICATION
     Route: 048
  3. SULFASALAZINE [Concomitant]
     Indication: CROHN'S DISEASE
     Route: 048
  4. PENTASA [Concomitant]
     Route: 048
  5. IMURAN [Concomitant]
     Route: 048

REACTIONS (3)
  - CROHN'S DISEASE [None]
  - DIABETES INSIPIDUS [None]
  - LYMPHOCYTIC HYPOPHYSITIS [None]
